FAERS Safety Report 8904249 (Version 2)
Quarter: 2013Q2

REPORT INFORMATION
  Report Type: Report from Study
  Country: JP (occurrence: JP)
  Receive Date: 20121112
  Receipt Date: 20130415
  Transmission Date: 20140414
  Serious: Yes (Hospitalization)
  Sender: FDA-Public Use
  Company Number: JP-009507513-2012SP035863

PATIENT
  Age: 48 Year
  Sex: Male
  Weight: 64 kg

DRUGS (10)
  1. PEGINTRON [Suspect]
     Indication: CHRONIC HEPATITIS C
     Dosage: 1.6 MICROGRAM PER KILOGRAM, QW
     Route: 058
     Dates: start: 20120521
  2. REBETOL [Suspect]
     Indication: CHRONIC HEPATITIS C
     Dosage: 800 MG, QD
     Route: 048
     Dates: start: 20120521, end: 20120610
  3. REBETOL [Suspect]
     Dosage: 600 MG, ONCE
     Route: 048
     Dates: start: 20120611, end: 20120729
  4. REBETOL [Suspect]
     Dosage: 400 MG, ONCE
     Route: 048
     Dates: start: 20120730
  5. TELAVIC [Suspect]
     Indication: CHRONIC HEPATITIS C
     Dosage: 2250 MG, QD
     Route: 048
     Dates: start: 20120521, end: 20120606
  6. TELAVIC [Suspect]
     Dosage: 1500 MG, QD
     Route: 048
     Dates: start: 20120611, end: 20120812
  7. SELBEX [Concomitant]
     Indication: PROPHYLAXIS
     Dosage: 150 MG, QD
     Route: 048
     Dates: start: 20120521
  8. LOXONIN [Concomitant]
     Indication: INSOMNIA
     Dosage: 60 MG, QD, PRN
     Route: 048
     Dates: start: 20120522, end: 20120701
  9. MYSLEE [Concomitant]
     Indication: INSOMNIA
     Dosage: 10 MG, QD, PRN
     Route: 048
     Dates: start: 20120522, end: 20120523
  10. LENDORMIN [Concomitant]
     Indication: INSOMNIA
     Dosage: 0.25 MG, QD, PRN
     Route: 048
     Dates: start: 20120524, end: 20120612

REACTIONS (1)
  - Blood creatinine increased [Recovering/Resolving]
